FAERS Safety Report 17751423 (Version 1)
Quarter: 2020Q2

REPORT INFORMATION
  Report Type: Spontaneous
  Country: US (occurrence: US)
  Receive Date: 20200506
  Receipt Date: 20200506
  Transmission Date: 20200714
  Serious: Yes (Other)
  Sender: FDA-Public Use
  Company Number: US-SA-2020SA113965

PATIENT
  Age: 73 Year
  Sex: Female

DRUGS (18)
  1. NEOSAR [Concomitant]
     Active Substance: CYCLOPHOSPHAMIDE
     Indication: BREAST CANCER FEMALE
  2. TAXOTERE [Suspect]
     Active Substance: DOCETAXEL
     Indication: BREAST CANCER FEMALE
     Dosage: UNK UNK, QOW
     Route: 042
     Dates: start: 20140829, end: 20140829
  3. HYDROCHLOROTHIAZIDE. [Concomitant]
     Active Substance: HYDROCHLOROTHIAZIDE
  4. LOSARTAN. [Concomitant]
     Active Substance: LOSARTAN
     Dosage: UNK
     Dates: start: 2011
  5. METRONIDAZOLE. [Concomitant]
     Active Substance: METRONIDAZOLE
     Dosage: UNK
  6. CALCIUM [Concomitant]
     Active Substance: CALCIUM
     Dosage: UNK
  7. STRONTIUM [Concomitant]
     Active Substance: STRONTIUM
     Dosage: UNK
  8. PLAVIX [Concomitant]
     Active Substance: CLOPIDOGREL BISULFATE
  9. PRAVASTATIN. [Concomitant]
     Active Substance: PRAVASTATIN
  10. UBIQUINOL [Concomitant]
     Active Substance: UBIQUINOL
     Dosage: UNK
  11. IMDUR [Concomitant]
     Active Substance: ISOSORBIDE MONONITRATE
  12. LOPID [Concomitant]
     Active Substance: GEMFIBROZIL
  13. ASA [Concomitant]
     Active Substance: ASPIRIN
  14. CRESTOR [Concomitant]
     Active Substance: ROSUVASTATIN CALCIUM
  15. TAXOTERE [Suspect]
     Active Substance: DOCETAXEL
     Dosage: UNK
     Route: 042
     Dates: start: 20141031, end: 20141031
  16. VITAMIN D3 [Concomitant]
     Active Substance: CHOLECALCIFEROL
  17. SIMVASTATIN. [Concomitant]
     Active Substance: SIMVASTATIN
  18. ARIMIDEX [Concomitant]
     Active Substance: ANASTROZOLE

REACTIONS (2)
  - Psychological trauma [Unknown]
  - Alopecia [Recovering/Resolving]

NARRATIVE: CASE EVENT DATE: 201409
